FAERS Safety Report 15158681 (Version 1)
Quarter: 2018Q3

REPORT INFORMATION
  Report Type: Spontaneous
  Country: DE (occurrence: DE)
  Receive Date: 20180718
  Receipt Date: 20180718
  Transmission Date: 20181010
  Serious: Yes (Death, Other)
  Sender: FDA-Public Use
  Company Number: PHHY2018DE046538

PATIENT

DRUGS (1)
  1. ARGATROBAN. [Suspect]
     Active Substance: ARGATROBAN
     Indication: DEVICE RELATED THROMBOSIS
     Dosage: 2 UG/KG/MIN
     Route: 042

REACTIONS (2)
  - Haemorrhage [Unknown]
  - Ischaemic stroke [Fatal]
